FAERS Safety Report 4944498-9 (Version None)
Quarter: 2006Q1

REPORT INFORMATION
  Report Type: 
  Country: None (occurrence: None)
  Receive Date: 20060104
  Receipt Date: 20050818
  Transmission Date: 20060701
  Serious: Yes (Other)
  Sender: FDA-Public Use
  Company Number: A03200502753

PATIENT
  Age: 59 Year
  Sex: Female
  Weight: 117.028 kg

DRUGS (11)
  1. ELOXATIN [Suspect]
     Indication: COLON CANCER
     Dosage: 170 MG Q2W -INTRAVENOUS NOS
     Route: 042
     Dates: start: 20050711, end: 20050711
  2. ELOXATIN [Suspect]
     Indication: METASTASES TO LIVER
     Dosage: 170 MG Q2W -INTRAVENOUS NOS
     Route: 042
     Dates: start: 20050711, end: 20050711
  3. MULTIVITAMIN [Concomitant]
  4. METOCLOPRAMIDE [Concomitant]
  5. FUROSEMIDE [Concomitant]
  6. POTASSIUM CHLORIDE [Concomitant]
  7. ESCITALOPRAM OXALATE [Concomitant]
  8. SPIRONOLACTONE [Concomitant]
  9. DIPHENOXYLATE [Concomitant]
  10. CALCIUM GLUCONATE [Concomitant]
  11. ONDANSETRON HYDROCHLORIDE [Concomitant]

REACTIONS (6)
  - DYSPNOEA [None]
  - FEELING HOT [None]
  - FLUSHING [None]
  - HYPOXIA [None]
  - NAUSEA [None]
  - PRURITUS GENERALISED [None]
